FAERS Safety Report 18343848 (Version 1)
Quarter: 2020Q4

REPORT INFORMATION
  Report Type: Spontaneous
  Country: US (occurrence: US)
  Receive Date: 20201004
  Receipt Date: 20201004
  Transmission Date: 20210114
  Serious: Yes (Other)
  Sender: FDA-Public Use
  Company Number: None

PATIENT
  Age: 27 Year
  Sex: Female
  Weight: 8.5 kg

DRUGS (7)
  1. PROZAC [Concomitant]
     Active Substance: FLUOXETINE HYDROCHLORIDE
  2. ALBUTEROL SULFATE INHALATION AEROSOL [Suspect]
     Active Substance: ALBUTEROL SULFATE
  3. LEVOTHYROXIN [Concomitant]
     Active Substance: LEVOTHYROXINE
  4. ACYCLOVIR. [Concomitant]
     Active Substance: ACYCLOVIR
  5. PRENATAL VITAMINS [Concomitant]
     Active Substance: VITAMINS
  6. HYDROXYZINE [Concomitant]
     Active Substance: HYDROXYZINE HYDROCHLORIDE
  7. ALBUTEROL. [Concomitant]
     Active Substance: ALBUTEROL

REACTIONS (2)
  - Device defective [None]
  - Dyspnoea [None]

NARRATIVE: CASE EVENT DATE: 20201003
